FAERS Safety Report 14258313 (Version 1)
Quarter: 2017Q4

REPORT INFORMATION
  Report Type: Spontaneous
  Country: FO (occurrence: FO)
  Receive Date: 20171207
  Receipt Date: 20171207
  Transmission Date: 20180321
  Serious: Yes (Hospitalization)
  Sender: FDA-Public Use
  Company Number: FO-CIPLA LTD.-2017FO21386

PATIENT
  Age: 75 Year
  Sex: Male

DRUGS (10)
  1. ATORVASTATIN [Suspect]
     Active Substance: ATORVASTATIN
     Indication: HYPERLIPIDAEMIA
     Dosage: 80 MG DAILY
     Route: 065
  2. MOXIFLOXACIN. [Concomitant]
     Active Substance: MOXIFLOXACIN
     Indication: INFECTIVE ANEURYSM
  3. FUSIDIC ACID [Interacting]
     Active Substance: FUSIDIC ACID
     Indication: ABSCESS
  4. MOXIFLOXACIN. [Concomitant]
     Active Substance: MOXIFLOXACIN
     Indication: ANTIBIOTIC PROPHYLAXIS
     Dosage: 400 MG DAILY
     Route: 048
  5. FUSIDIC ACID [Interacting]
     Active Substance: FUSIDIC ACID
     Indication: INFECTIVE ANEURYSM
  6. RIVAROXABAN [Concomitant]
     Active Substance: RIVAROXABAN
     Indication: ATRIAL FIBRILLATION
     Dosage: UNK
     Route: 065
  7. FUSIDIC ACID [Interacting]
     Active Substance: FUSIDIC ACID
     Indication: VASCULAR STENT INFECTION
     Dosage: 500 MG, BID
     Route: 048
  8. FUSIDIC ACID [Interacting]
     Active Substance: FUSIDIC ACID
     Indication: ANTIBIOTIC PROPHYLAXIS
  9. MOXIFLOXACIN. [Concomitant]
     Active Substance: MOXIFLOXACIN
     Indication: VASCULAR STENT INFECTION
  10. MOXIFLOXACIN. [Concomitant]
     Active Substance: MOXIFLOXACIN
     Indication: ABSCESS

REACTIONS (2)
  - Rhabdomyolysis [Recovering/Resolving]
  - Drug interaction [Unknown]
